FAERS Safety Report 6172580-X (Version None)
Quarter: 2009Q2

REPORT INFORMATION
  Report Type: 
  Country: None (occurrence: None)
  Receive Date: 20090428
  Receipt Date: 20090416
  Transmission Date: 20091009
  Serious: Yes (Death)
  Sender: FDA-Public Use
  Company Number: GXKR2009US04593

PATIENT
  Age: 42 Year
  Sex: Female

DRUGS (1)
  1. PREDNISONE [Suspect]
     Dosage: 10 MG, Q12H

REACTIONS (12)
  - ALPHA HAEMOLYTIC STREPTOCOCCAL INFECTION [None]
  - CARDIAC MURMUR [None]
  - CARDIAC VALVE ABSCESS [None]
  - ENDOCARDITIS [None]
  - FATIGUE [None]
  - HAEMATOCRIT DECREASED [None]
  - HAEMOGLOBIN DECREASED [None]
  - HEART VALVE INCOMPETENCE [None]
  - NIGHT SWEATS [None]
  - RESPIRATORY DISTRESS [None]
  - SERUM FERRITIN INCREASED [None]
  - SPLENOMEGALY [None]
